FAERS Safety Report 12484824 (Version 3)
Quarter: 2016Q3

REPORT INFORMATION
  Report Type: Spontaneous
  Country: US (occurrence: US)
  Receive Date: 20160621
  Receipt Date: 20160727
  Transmission Date: 20161109
  Serious: Yes (Hospitalization, Other)
  Sender: FDA-Public Use
  Company Number: US-ASTRAZENECA-2016SE61694

PATIENT
  Age: 66 Year
  Sex: Male
  Weight: 88.5 kg

DRUGS (1)
  1. TUDORZA PRESSAIR [Suspect]
     Active Substance: ACLIDINIUM BROMIDE
     Indication: CHRONIC OBSTRUCTIVE PULMONARY DISEASE
     Route: 055
     Dates: start: 20160530

REACTIONS (7)
  - Drug dose omission [Recovered/Resolved]
  - Fall [Unknown]
  - Head and neck cancer [Unknown]
  - Throat cancer [Unknown]
  - Blood pressure decreased [Unknown]
  - Intentional product misuse [Recovered/Resolved]
  - Product quality issue [Unknown]

NARRATIVE: CASE EVENT DATE: 2016
